FAERS Safety Report 24137342 (Version 4)
Quarter: 2024Q3

REPORT INFORMATION
  Report Type: Spontaneous
  Country: US (occurrence: US)
  Receive Date: 20240725
  Receipt Date: 20240822
  Transmission Date: 20241017
  Serious: No
  Sender: ROCHE
  Company Number: US-ROCHE-10000031949

PATIENT
  Sex: Female

DRUGS (9)
  1. ACTEMRA ACTPEN [Suspect]
     Active Substance: TOCILIZUMAB
     Indication: Pain in extremity
     Dosage: STRENGTH: 162 MG/0.9 ML
     Route: 058
     Dates: start: 20240628
  2. JARDIANCE [Concomitant]
     Active Substance: EMPAGLIFLOZIN
  3. TRULICITY [Concomitant]
     Active Substance: DULAGLUTIDE
  4. ATENOLOL [Concomitant]
     Active Substance: ATENOLOL
  5. CLONIDINE [Concomitant]
     Active Substance: CLONIDINE
  6. LYRICA [Concomitant]
     Active Substance: PREGABALIN
  7. PROCARDIA [Concomitant]
     Active Substance: NIFEDIPINE
  8. ASPIRIN [Concomitant]
     Active Substance: ASPIRIN
  9. TYLENOL [Concomitant]
     Active Substance: ACETAMINOPHEN

REACTIONS (5)
  - Accidental exposure to product [Unknown]
  - Device defective [Unknown]
  - Loose tooth [Not Recovered/Not Resolved]
  - Product complaint [Unknown]
  - Off label use [Unknown]
